FAERS Safety Report 22021052 (Version 1)
Quarter: 2023Q1

REPORT INFORMATION
  Report Type: Spontaneous
  Country: US (occurrence: None)
  Receive Date: 20230217
  Receipt Date: 20230217
  Transmission Date: 20230418
  Serious: Yes (Life-Threatening)
  Sender: FDA-Public Use
  Company Number: None

PATIENT
  Age: 39 Year
  Sex: Female
  Weight: 77.11 kg

DRUGS (2)
  1. DEVICE [Suspect]
     Active Substance: DEVICE
  2. UNSPECIFIED INGREDIENT [Suspect]
     Active Substance: UNSPECIFIED INGREDIENT

REACTIONS (7)
  - Device failure [None]
  - Nausea [None]
  - Diarrhoea [None]
  - Cold sweat [None]
  - Dizziness [None]
  - Vomiting [None]
  - Device failure [None]

NARRATIVE: CASE EVENT DATE: 20221226
